FAERS Safety Report 8621968-3 (Version None)
Quarter: 2012Q3

REPORT INFORMATION
  Report Type: 
  Country: None (occurrence: None)
  Receive Date: 20120823
  Receipt Date: 20120823
  Transmission Date: 20120928
  Serious: Yes (Hospitalization)
  Sender: FDA-Public Use
  Company Number: None

PATIENT
  Sex: Female
  Weight: 81.14 kg

DRUGS (2)
  1. CARBOPLATIN [Suspect]
     Dosage: 625 MG
  2. TAXOL [Suspect]
     Dosage: 320 MG

REACTIONS (2)
  - LYMPHOCYTE COUNT DECREASED [None]
  - ANAEMIA [None]
